FAERS Safety Report 16645281 (Version 1)
Quarter: 2019Q3

REPORT INFORMATION
  Report Type: Report from Study
  Country: US (occurrence: US)
  Receive Date: 20190729
  Receipt Date: 20190729
  Transmission Date: 20191004
  Serious: Yes (Other)
  Sender: FDA-Public Use
  Company Number: US-OTSUKA-2019_027006

PATIENT
  Age: 65 Year
  Sex: Male

DRUGS (1)
  1. DEXTROMETHORPHAN/QUINIDINE [Suspect]
     Active Substance: DEXTROMETHORPHAN HYDROBROMIDE\QUINIDINE SULFATE
     Indication: AFFECT LABILITY
     Dosage: UNK
     Route: 065
     Dates: start: 20160806

REACTIONS (11)
  - Lymphoedema [Unknown]
  - Cellulitis [Unknown]
  - Metabolic encephalopathy [Unknown]
  - Asthenia [Unknown]
  - Sepsis [Unknown]
  - Haemorrhoids [Unknown]
  - Pneumonia [Unknown]
  - Syncope [Unknown]
  - Dermatitis [Unknown]
  - Peripheral vascular disorder [Unknown]
  - Acute respiratory failure [Unknown]

NARRATIVE: CASE EVENT DATE: 20161125
